FAERS Safety Report 6157783-2 (Version None)
Quarter: 2009Q2

REPORT INFORMATION
  Report Type: 
  Country: None (occurrence: None)
  Receive Date: 20090409
  Receipt Date: 20090318
  Transmission Date: 20091009
  Serious: Yes (Other)
  Sender: FDA-Public Use
  Company Number: 302719998-2009-002

PATIENT
  Sex: Female

DRUGS (1)
  1. PUROS CANCELLOUS CHIPS [Suspect]

REACTIONS (1)
  - INFECTION [None]
